FAERS Safety Report 4785015-6 (Version None)
Quarter: 2005Q3

REPORT INFORMATION
  Report Type: 
  Country: None (occurrence: None)
  Receive Date: 20050930
  Receipt Date: 20050225
  Transmission Date: 20060218
  Serious: Yes (Congenital Anomaly)
  Sender: FDA-Public Use
  Company Number: GB-ABBOTT-05P-167-0292146-00

PATIENT
  Sex: Female
  Weight: 3.405 kg

DRUGS (2)
  1. EPILIM [Suspect]
     Indication: DRUG EXPOSURE DURING PREGNANCY
  2. CARBAMAZEPINE [Suspect]
     Indication: DRUG EXPOSURE DURING PREGNANCY

REACTIONS (21)
  - ABNORMAL BEHAVIOUR [None]
  - CLINODACTYLY [None]
  - COGNITIVE DISORDER [None]
  - CONJUNCTIVITIS [None]
  - CONVULSION [None]
  - COORDINATION ABNORMAL [None]
  - DEAFNESS [None]
  - DEVELOPMENTAL DELAY [None]
  - DISTURBANCE IN ATTENTION [None]
  - DISTURBANCE IN SOCIAL BEHAVIOUR [None]
  - DYSKINESIA [None]
  - FACIAL DYSMORPHISM [None]
  - FEEDING DISORDER [None]
  - FOETAL VALPROATE SYNDROME [None]
  - FOOD INTOLERANCE [None]
  - HYPOGLYCAEMIA [None]
  - LEARNING DISORDER [None]
  - LOW SET EARS [None]
  - MIDDLE EAR EFFUSION [None]
  - MIXED RECEPTIVE-EXPRESSIVE LANGUAGE DISORDER [None]
  - ORAL CANDIDIASIS [None]
